FAERS Safety Report 5131747-X (Version None)
Quarter: 2006Q4

REPORT INFORMATION
  Report Type: 
  Country: None (occurrence: None)
  Receive Date: 20061016
  Receipt Date: 20061005
  Transmission Date: 20070319
  Serious: Yes (Other)
  Sender: FDA-Public Use
  Company Number: 2006SP004026

PATIENT

DRUGS (1)
  1. POSACONAZOLE [Suspect]
     Indication: PROPHYLAXIS

REACTIONS (1)
  - TRICHOSPORON INFECTION [None]
